FAERS Safety Report 9012502 (Version 2)
Quarter: 2013Q1

REPORT INFORMATION
  Report Type: Spontaneous
  Country: US (occurrence: US)
  Receive Date: 20130114
  Receipt Date: 20130215
  Transmission Date: 20140127
  Serious: No
  Sender: FDA-Public Use
  Company Number: US-PFIZER INC-2013014323

PATIENT
  Age: 52 Year
  Sex: Female

DRUGS (2)
  1. EPIPEN [Suspect]
     Dosage: 0.3 MG, SINGLE
     Route: 058
     Dates: start: 20130110
  2. MOTRIN [Concomitant]
     Indication: PAIN
     Dosage: UNK

REACTIONS (5)
  - Accidental exposure to product [Recovered/Resolved]
  - Product quality issue [Recovered/Resolved]
  - Palpitations [Recovered/Resolved]
  - Anxiety [Recovered/Resolved]
  - Flushing [Recovered/Resolved]
